FAERS Safety Report 9969661 (Version 1)
Quarter: 2014Q1

REPORT INFORMATION
  Report Type: Spontaneous
  Country: US (occurrence: None)
  Receive Date: 20140304
  Receipt Date: 20140304
  Transmission Date: 20141002
  Serious: Yes (Hospitalization)
  Sender: FDA-Public Use
  Company Number: VAL_03014_2014

PATIENT
  Age: 35 Year
  Sex: Male

DRUGS (7)
  1. METOPROLOL TARTRATE [Suspect]
     Indication: PRODUCT USED FOR UNKNOWN INDICATION
     Dosage: DF
  2. BACLOFEN [Suspect]
     Indication: PRODUCT USED FOR UNKNOWN INDICATION
     Route: 037
  3. BACLOFEN [Suspect]
     Indication: MUSCLE SPASTICITY
     Route: 037
  4. MORPHINE [Suspect]
     Indication: PRODUCT USED FOR UNKNOWN INDICATION
     Route: 037
  5. BUPIVACAINE [Suspect]
     Indication: MUSCLE SPASMS
     Dosage: SMALLER THAN 3 SOMETHING PER DAY
     Route: 037
  6. FLEXERIL [Suspect]
     Indication: PRODUCT USED FOR UNKNOWN INDICATION
     Dosage: 10 MG, QID, 3-4 TIMES A DAY
  7. ATIVAN [Suspect]
     Indication: PRODUCT USED FOR UNKNOWN INDICATION
     Dosage: DF

REACTIONS (3)
  - Blood pressure increased [None]
  - Dyspnoea [None]
  - Withdrawal syndrome [None]
